FAERS Safety Report 4738002-8 (Version None)
Quarter: 2005Q3

REPORT INFORMATION
  Report Type: 
  Country: None (occurrence: None)
  Receive Date: 20050805
  Receipt Date: 20050805
  Transmission Date: 20060218
  Serious: No
  Sender: FDA-Public Use
  Company Number: None

PATIENT
  Age: 52 Year
  Sex: Male

DRUGS (3)
  1. FUROSEMIDE [Suspect]
     Dosage: 20 MG PO BID
     Route: 048
  2. VANCOMYCIN [Suspect]
     Dosage: 1 GM IV QD
     Route: 042
  3. SPIRONOLACTONE [Suspect]
     Dosage: 100 MG PO QID
     Route: 048

REACTIONS (4)
  - ASCITES [None]
  - HYPERKALAEMIA [None]
  - ORAL INTAKE REDUCED [None]
  - RENAL FAILURE ACUTE [None]
